FAERS Safety Report 9818137 (Version 1)
Quarter: 2014Q1

REPORT INFORMATION
  Report Type: Report from Study
  Country: DE (occurrence: DE)
  Receive Date: 20140115
  Receipt Date: 20140115
  Transmission Date: 20141002
  Serious: Yes (Hospitalization)
  Sender: FDA-Public Use
  Company Number: PHHY2013DE155052

PATIENT
  Age: 70 Year
  Sex: Male
  Weight: 95 kg

DRUGS (3)
  1. ZOMETA [Suspect]
     Dosage: UNK UKN, UNK
  2. PREDNISONE [Suspect]
     Indication: PROSTATE CANCER
     Dosage: 5 MG, BID
     Route: 048
     Dates: start: 20111123, end: 20131001
  3. ORTERONEL [Suspect]
     Indication: PROSTATE CANCER
     Dosage: 400 MG, BID
     Route: 048
     Dates: start: 20111123, end: 20131001

REACTIONS (3)
  - Osteonecrosis of jaw [Recovered/Resolved with Sequelae]
  - Oedema mouth [Unknown]
  - Dysphagia [Unknown]
